FAERS Safety Report 25171373 (Version 1)
Quarter: 2025Q2

REPORT INFORMATION
  Report Type: Spontaneous
  Country: IN (occurrence: IN)
  Receive Date: 20250408
  Receipt Date: 20250408
  Transmission Date: 20250717
  Serious: Yes (Death, Hospitalization, Other)
  Sender: AMGEN
  Company Number: IN-AMGEN-INDSP2025040909

PATIENT
  Age: 17 Year
  Sex: Male

DRUGS (2)
  1. BLINCYTO [Suspect]
     Active Substance: BLINATUMOMAB
     Indication: B precursor type acute leukaemia
     Dosage: 9 MICROGRAM, QD (9 MCG/24 HOURS ON DAYS 1-7)
     Route: 065
     Dates: start: 20241009, end: 20241015
  2. BLINCYTO [Suspect]
     Active Substance: BLINATUMOMAB
     Dosage: 28 MICROGRAM, QD (28 MCG/24 HOURS ON DAYS 8-28)
     Route: 065
     Dates: start: 20241016, end: 20241019

REACTIONS (2)
  - Acute lymphocytic leukaemia refractory [Fatal]
  - Immune effector cell-associated neurotoxicity syndrome [Recovered/Resolved]

NARRATIVE: CASE EVENT DATE: 20241019
